FAERS Safety Report 9645697 (Version 2)
Quarter: 2014Q1

REPORT INFORMATION
  Report Type: Spontaneous
  Country: DE (occurrence: DE)
  Receive Date: 20131025
  Receipt Date: 20140220
  Transmission Date: 20141002
  Serious: Yes (Life-Threatening, Hospitalization)
  Sender: FDA-Public Use
  Company Number: DE-JNJFOC-20131013978

PATIENT
  Age: 68 Year
  Sex: Male
  Weight: 66 kg

DRUGS (3)
  1. XARELTO [Suspect]
     Indication: PRODUCT USED FOR UNKNOWN INDICATION
     Dosage: 20 UNKNOWN (STRENGHT)
     Route: 048
     Dates: start: 201301
  2. NEBILET [Concomitant]
     Route: 065
  3. VILDAGLIPTIN/METFORMIN HYDROCHLORIDE [Concomitant]
     Route: 065

REACTIONS (2)
  - Gastrointestinal haemorrhage [Recovering/Resolving]
  - Blood product transfusion [Recovering/Resolving]
